FAERS Safety Report 5820254-4 (Version None)
Quarter: 2008Q3

REPORT INFORMATION
  Report Type: 
  Country: None (occurrence: None)
  Receive Date: 20080722
  Receipt Date: 20080722
  Transmission Date: 20090109
  Serious: Yes (Disabling)
  Sender: FDA-Public Use
  Company Number: None

PATIENT
  Sex: Female

DRUGS (2)
  1. MARCAINE HYDROCHLORIDE W/ EPINEPHRINE [Suspect]
     Indication: ARTHROPATHY
     Dosage: 300 CC 014
     Dates: start: 20020408
  2. MARCAINE HYDROCHLORIDE W/ EPINEPHRINE [Suspect]
     Indication: ARTHROPATHY
     Dosage: 300 CC 014
     Dates: start: 20020410

REACTIONS (4)
  - ARTHRITIS [None]
  - DEVICE MALFUNCTION [None]
  - EXOSTOSIS [None]
  - OSTEOSCLEROSIS [None]
